FAERS Safety Report 7494551-3 (Version None)
Quarter: 2011Q2

REPORT INFORMATION
  Report Type: 
  Country: None (occurrence: None)
  Receive Date: 20110520
  Receipt Date: 20110517
  Transmission Date: 20111010
  Serious: Yes (Death)
  Sender: FDA-Public Use
  Company Number: PHHY2011MX42176

PATIENT
  Age: 83 Year
  Sex: Female

DRUGS (1)
  1. EXELON [Suspect]
     Indication: DEMENTIA ALZHEIMER'S TYPE
     Dosage: 1 DF/ DAY; PATCH 10 (CM^2)
     Route: 062
     Dates: start: 20090501

REACTIONS (4)
  - BLOOD PRESSURE INADEQUATELY CONTROLLED [None]
  - APHONIA [None]
  - DYSPHAGIA [None]
  - CEREBRAL INFARCTION [None]
